FAERS Safety Report 14228237 (Version 1)
Quarter: 2017Q4

REPORT INFORMATION
  Report Type: Spontaneous
  Country: SN (occurrence: SN)
  Receive Date: 20171127
  Receipt Date: 20171127
  Transmission Date: 20180321
  Serious: Yes (Other)
  Sender: FDA-Public Use
  Company Number: SN-TELIGENT, INC-IGIL20170496

PATIENT
  Age: 47 Year
  Sex: Female

DRUGS (2)
  1. CLOBETASOL PROPIONATE. [Suspect]
     Active Substance: CLOBETASOL PROPIONATE
     Indication: SKIN COSMETIC PROCEDURE
     Dosage: UNKNOWN
     Route: 061
  2. HYDROQUINONE. [Suspect]
     Active Substance: HYDROQUINONE
     Indication: SKIN COSMETIC PROCEDURE
     Dosage: UNKNOWN
     Route: 061

REACTIONS (4)
  - Skin atrophy [Unknown]
  - Product use in unapproved indication [None]
  - Neoplasm skin [Recovered/Resolved]
  - Squamous cell carcinoma of skin [Recovered/Resolved]
